FAERS Safety Report 12579576 (Version 1)
Quarter: 2016Q3

REPORT INFORMATION
  Report Type: Spontaneous
  Country: JP (occurrence: JP)
  Receive Date: 20160721
  Receipt Date: 20160721
  Transmission Date: 20161109
  Serious: Yes (Other)
  Sender: FDA-Public Use
  Company Number: JP-PFIZER INC-2016338568

PATIENT
  Age: 44 Year
  Sex: Male

DRUGS (2)
  1. CHAMPIX [Suspect]
     Active Substance: VARENICLINE TARTRATE
     Indication: SMOKING CESSATION THERAPY
     Dosage: UNK
     Route: 048
     Dates: start: 201604, end: 20160707
  2. NAUZELIN [Concomitant]
     Active Substance: DOMPERIDONE
     Indication: VOMITING
     Dosage: UNK

REACTIONS (3)
  - Bundle branch block left [Unknown]
  - Retching [Unknown]
  - Headache [Unknown]

NARRATIVE: CASE EVENT DATE: 2016
